FAERS Safety Report 20143954 (Version 3)
Quarter: 2022Q1

REPORT INFORMATION
  Report Type: Other
  Country: CN (occurrence: CN)
  Receive Date: 20211203
  Receipt Date: 20220329
  Transmission Date: 20220424
  Serious: Yes (Other)
  Sender: FDA-Public Use
  Company Number: CN-Blueprint Medicines Corporation-SO-CN-2021-002341

PATIENT

DRUGS (1)
  1. GAVRETO [Suspect]
     Active Substance: PRALSETINIB
     Indication: Lung adenocarcinoma stage IV
     Route: 048
     Dates: start: 202106

REACTIONS (1)
  - Carcinoembryonic antigen increased [Not Recovered/Not Resolved]

NARRATIVE: CASE EVENT DATE: 20211101
